APPROVED DRUG PRODUCT: BRIMONIDINE TARTRATE
Active Ingredient: BRIMONIDINE TARTRATE
Strength: 0.2%
Dosage Form/Route: SOLUTION/DROPS;OPHTHALMIC
Application: A078075 | Product #001 | TE Code: AT
Applicant: SANDOZ INC
Approved: Jan 30, 2008 | RLD: No | RS: No | Type: RX